FAERS Safety Report 19006092 (Version 2)
Quarter: 2021Q1

REPORT INFORMATION
  Report Type: Report from Study
  Country: None (occurrence: CA)
  Receive Date: 20210314
  Receipt Date: 20210321
  Transmission Date: 20210420
  Serious: Yes (Hospitalization, Other)
  Sender: FDA-Public Use
  Company Number: CA-ABBVIE-21K-028-3807591-00

PATIENT
  Sex: Female

DRUGS (1)
  1. HUMIRA [Suspect]
     Active Substance: ADALIMUMAB
     Indication: CROHN^S DISEASE
     Route: 058
     Dates: start: 20201231, end: 202103

REACTIONS (4)
  - Visual impairment [Unknown]
  - Musculoskeletal disorder [Unknown]
  - Therapeutic product effect decreased [Unknown]
  - Multiple sclerosis [Not Recovered/Not Resolved]
